FAERS Safety Report 22148647 (Version 3)
Quarter: 2023Q2

REPORT INFORMATION
  Report Type: Report from Study
  Country: US (occurrence: US)
  Receive Date: 20230328
  Receipt Date: 20230421
  Transmission Date: 20230721
  Serious: No
  Sender: FDA-Public Use
  Company Number: US-SA-SAC20230327000069

PATIENT
  Age: 63 Year
  Sex: Female

DRUGS (2)
  1. DUPIXENT [Suspect]
     Active Substance: DUPILUMAB
     Indication: Eczema
     Dosage: 300 MG, 1X
     Route: 058
     Dates: start: 2022, end: 2022
  2. DUPIXENT [Suspect]
     Active Substance: DUPILUMAB
     Dosage: 300 MG, QOW
     Route: 058

REACTIONS (12)
  - Injection site pain [Unknown]
  - Abnormal sensation in eye [Unknown]
  - Asthenopia [Unknown]
  - Vascular pain [Unknown]
  - Joint stiffness [Unknown]
  - Pruritus [Unknown]
  - Therapeutic response shortened [Unknown]
  - Vision blurred [Unknown]
  - Arthralgia [Not Recovered/Not Resolved]
  - Injection site swelling [Unknown]
  - Wrong technique in product usage process [Unknown]
  - Incorrect dose administered [Unknown]

NARRATIVE: CASE EVENT DATE: 20220101
